FAERS Safety Report 7916701-4 (Version None)
Quarter: 2011Q4

REPORT INFORMATION
  Report Type: 
  Country: None (occurrence: None)
  Receive Date: 20111107
  Receipt Date: 20111024
  Transmission Date: 20120403
  Serious: Yes (Hospitalization, Other)
  Sender: FDA-Public Use
  Company Number: 2011PROUSA00637

PATIENT
  Age: 70 Year
  Sex: Male

DRUGS (1)
  1. PROVENGE [Suspect]
     Indication: PROSTATE CANCER METASTATIC
     Dosage: 250 ML, SINGLE, INTRAVENOUS
     Route: 042
     Dates: start: 20110826, end: 20110826

REACTIONS (15)
  - ADRENAL INSUFFICIENCY [None]
  - NORMOCHROMIC NORMOCYTIC ANAEMIA [None]
  - OESOPHAGITIS ULCERATIVE [None]
  - ANXIETY [None]
  - GASTRITIS [None]
  - GALLBLADDER MUCOCOELE [None]
  - OTITIS MEDIA ACUTE [None]
  - HEPATIC LESION [None]
  - BACK PAIN [None]
  - NEOPLASM PROGRESSION [None]
  - HYPONATRAEMIA [None]
  - FAILURE TO THRIVE [None]
  - VOMITING [None]
  - DEPRESSION [None]
  - RETROPERITONEAL NEOPLASM METASTATIC [None]
